FAERS Safety Report 6435506-7 (Version None)
Quarter: 2009Q4

REPORT INFORMATION
  Report Type: 
  Country: None (occurrence: None)
  Receive Date: 20091111
  Receipt Date: 20091102
  Transmission Date: 20100525
  Serious: Yes (Other)
  Sender: FDA-Public Use
  Company Number: US-BIOGENIDEC-2009BI035552

PATIENT
  Age: 22 Year
  Sex: Female

DRUGS (2)
  1. TYSABRI [Suspect]
     Indication: MULTIPLE SCLEROSIS
     Route: 042
     Dates: start: 20090717
  2. BIRTH CONTROL PILL [Concomitant]
     Indication: CONTRACEPTION

REACTIONS (3)
  - OPTIC NEURITIS [None]
  - PAIN IN EXTREMITY [None]
  - THROMBOSIS [None]
